FAERS Safety Report 17667536 (Version 1)
Quarter: 2020Q2

REPORT INFORMATION
  Report Type: Spontaneous
  Country: IT (occurrence: IT)
  Receive Date: 20200414
  Receipt Date: 20200414
  Transmission Date: 20200713
  Serious: Yes (Other)
  Sender: FDA-Public Use
  Company Number: IT-ASTRAZENECA-2020SE50357

PATIENT
  Age: 50 Year
  Sex: Female

DRUGS (2)
  1. BRONCOVALEAS [Suspect]
     Active Substance: ALBUTEROL
     Indication: BRONCHITIS CHRONIC
     Route: 055
  2. OMEPRAZOLE. [Suspect]
     Active Substance: OMEPRAZOLE
     Indication: GASTRITIS
     Route: 048

REACTIONS (2)
  - Dyspnoea [Recovering/Resolving]
  - Rash [Recovering/Resolving]

NARRATIVE: CASE EVENT DATE: 20200114
